FAERS Safety Report 4771895-7 (Version None)
Quarter: 2005Q3

REPORT INFORMATION
  Report Type: 
  Country: None (occurrence: None)
  Receive Date: 20050916
  Receipt Date: 20050812
  Transmission Date: 20060218
  Serious: Yes (Hospitalization)
  Sender: FDA-Public Use
  Company Number: PHBS2005EE11889

PATIENT
  Sex: Female

DRUGS (3)
  1. TRILEPTAL [Suspect]
     Indication: EPILEPSY
     Dosage: 1800 MG/D
     Route: 048
     Dates: start: 20050315, end: 20050819
  2. TOPAMAX [Concomitant]
     Dosage: 200 MG/D
  3. APYDAN [Concomitant]
     Dosage: 1200 MG/D
     Route: 065

REACTIONS (6)
  - ACNE [None]
  - IMMUNE SYSTEM DISORDER [None]
  - MOUTH HAEMORRHAGE [None]
  - RASH [None]
  - SKIN FISSURES [None]
  - SURGERY [None]
